FAERS Safety Report 12657809 (Version 4)
Quarter: 2017Q2

REPORT INFORMATION
  Report Type: Report from Study
  Country: US (occurrence: US)
  Receive Date: 20160816
  Receipt Date: 20170614
  Transmission Date: 20170830
  Serious: Yes (Hospitalization)
  Sender: FDA-Public Use
  Company Number: US-ACTELION-A-US2016-140628

PATIENT
  Age: 56 Year
  Sex: Male

DRUGS (5)
  1. OPSUMIT [Suspect]
     Active Substance: MACITENTAN
     Indication: PULMONARY ARTERIAL HYPERTENSION
     Dosage: 10 MG, UNK
     Route: 048
     Dates: start: 20160104
  2. ADCIRCA [Concomitant]
     Active Substance: TADALAFIL
  3. AMLODIPINE [Concomitant]
     Active Substance: AMLODIPINE BESYLATE
  4. REMODULIN [Concomitant]
     Active Substance: TREPROSTINIL
  5. XARELTO [Concomitant]
     Active Substance: RIVAROXABAN

REACTIONS (11)
  - Hypovolaemia [Recovered/Resolved]
  - Culture negative [Recovered/Resolved]
  - Blood potassium decreased [Recovered/Resolved]
  - Palpitations [Recovered/Resolved]
  - Diarrhoea [Recovered/Resolved]
  - Cerebrovascular accident [Recovered/Resolved]
  - Acute kidney injury [Recovered/Resolved]
  - Atrial flutter [Not Recovered/Not Resolved]
  - Hypotension [Recovered/Resolved]
  - Transplant evaluation [Recovered/Resolved]
  - Cardiac flutter [Recovered/Resolved]

NARRATIVE: CASE EVENT DATE: 20160718
